FAERS Safety Report 4318795-4 (Version None)
Quarter: 2004Q1

REPORT INFORMATION
  Report Type: 
  Country: None (occurrence: None)
  Receive Date: 20040315
  Receipt Date: 20040224
  Transmission Date: 20041129
  Serious: Yes (Hospitalization)
  Sender: FDA-Public Use
  Company Number: A02200400629

PATIENT
  Age: 74 Year
  Sex: Male

DRUGS (11)
  1. ACETYLSALICYLIC ACID SRT [Suspect]
     Dosage: 75 MG OD ORAL  A FEW YEARS
     Route: 048
     Dates: end: 20040120
  2. STILNOX - (ZOLPIDEM) - TABLE - 10 MG [Suspect]
     Dosage: 70 MCG TID RESPIRATORY INHALATION A FEW YEARS
     Route: 055
  3. BRONCHODUAL - (FENOTEROL/IPRATROPIUM BROMURE) - SUSPENSION - 70 MCG [Suspect]
     Dosage: 100 MG OD ORAL
     Route: 048
     Dates: end: 20040120
  4. DISCOTRINE - (GLYCERYL TRINITRATE) - PATCH - 10 MG [Suspect]
     Dosage: 10 MG OD TRANSDERMAL  A FEW YEARS
     Route: 062
  5. UNICORDIUM - (BEPRIDIL HYDROCHLORIDE MONOHYDRATE) - TABLET - 100 MG [Suspect]
     Dosage: 100 MG,OD ORAL    A FEW YEARS
     Route: 048
     Dates: end: 20040120
  6. OMIX - (TAMSULOSIN HYDROCHLORIDE) - CAPSULE PR - 0.4 MG [Suspect]
     Dosage: 0.4 MG OD ORAL A FEW YEARS
     Route: 048
     Dates: end: 20040120
  7. SERETIDE (FLUTICASONE/SALMETEROL) [Concomitant]
  8. SERMION (NICERGOLINE) [Concomitant]
  9. OLMIFON (ADRAFINIL) [Concomitant]
  10. EXOMUC (ACETYLCYSTEINE) [Concomitant]
  11. PNEUMOREL (FENSPIRIDE HYDROCHLORIDE) [Concomitant]

REACTIONS (2)
  - ECCHYMOSIS [None]
  - THROMBOCYTOPENIC PURPURA [None]
